FAERS Safety Report 8850251 (Version 2)
Quarter: 2012Q4

REPORT INFORMATION
  Report Type: 
  Country: US (occurrence: US)
  Receive Date: 20121019
  Receipt Date: 20121116
  Transmission Date: 20130627
  Serious: Yes (Death)
  Sender: FDA-Public Use
  Company Number: US-US-EMD SERONO, INC.-7168493

PATIENT
  Age: 40 Year
  Sex: Male
  Weight: 100 kg

DRUGS (9)
  1. EGRIFTA [Suspect]
     Indication: LIPODYSTROPHY ACQUIRED
     Route: 058
     Dates: start: 201205
  2. DURAGESIC [Concomitant]
     Indication: PRODUCT USED FOR UNKNOWN INDICATION
  3. NORCO [Concomitant]
     Indication: PRODUCT USED FOR UNKNOWN INDICATION
  4. DIAZEPAM [Concomitant]
     Indication: PRODUCT USED FOR UNKNOWN INDICATION
  5. TRUVADA [Concomitant]
     Indication: HIV INFECTION
  6. PREZISTA [Concomitant]
     Indication: HIV INFECTION
  7. NORVIR [Concomitant]
     Indication: HIV INFECTION
  8. ACYCLOVIR [Concomitant]
     Indication: HERPES SIMPLEX
  9. PRILOSEC [Concomitant]
     Indication: PRODUCT USED FOR UNKNOWN INDICATION

REACTIONS (1)
  - Cardiac arrest [Fatal]
